FAERS Safety Report 8770674 (Version 2)
Quarter: 2012Q4

REPORT INFORMATION
  Report Type: 
  Country: TR (occurrence: TR)
  Receive Date: 20120906
  Receipt Date: 20121001
  Transmission Date: 20130627
  Serious: Yes (Disabling, Other)
  Sender: FDA-Public Use
  Company Number: PHHY2010TR094807

PATIENT
  Sex: Male

DRUGS (1)
  1. CO-DIOVAN [Suspect]
     Indication: HYPERTENSION
     Dosage: 1 DF,daily
     Dates: start: 200803

REACTIONS (2)
  - Lower limb fracture [Unknown]
  - Hypertension [Unknown]
